FAERS Safety Report 14923622 (Version 1)
Quarter: 2018Q2

REPORT INFORMATION
  Report Type: Spontaneous
  Country: US (occurrence: US)
  Receive Date: 20180522
  Receipt Date: 20180522
  Transmission Date: 20180711
  Serious: No
  Sender: FDA-Public Use
  Company Number: US-PERRIGO-17US027437

PATIENT
  Age: 8 Month
  Sex: Female

DRUGS (1)
  1. ACETAMINOPHEN. [Suspect]
     Active Substance: ACETAMINOPHEN
     Indication: PYREXIA
     Dosage: 120 MG, QD
     Route: 054
     Dates: start: 20170927, end: 20171007

REACTIONS (7)
  - Crying [Not Recovered/Not Resolved]
  - Drug dispensing error [Recovered/Resolved]
  - Vomiting [Unknown]
  - Rash [Recovering/Resolving]
  - Pruritus [Unknown]
  - Insomnia [Not Recovered/Not Resolved]
  - Incorrect drug administration duration [Recovered/Resolved]

NARRATIVE: CASE EVENT DATE: 2017
